FAERS Safety Report 5473418-6 (Version None)
Quarter: 2007Q4

REPORT INFORMATION
  Report Type: 
  Country: None (occurrence: None)
  Receive Date: 20071001
  Receipt Date: 20070921
  Transmission Date: 20080405
  Serious: Yes (Hospitalization, Other)
  Sender: FDA-Public Use
  Company Number: GB-BAUSCH-2007BL003457

PATIENT
  Age: 19 Year
  Sex: Female

DRUGS (6)
  1. TOBRAMYCIN [Suspect]
     Indication: ANTI-INFECTIVE THERAPY
     Route: 042
     Dates: start: 20010501, end: 20010514
  2. TOBRAMYCIN [Suspect]
     Route: 042
     Dates: start: 20010601, end: 20010604
  3. MEROPENEM [Concomitant]
     Indication: ANTI-INFECTIVE THERAPY
     Route: 065
     Dates: start: 20010501, end: 20010501
  4. COLOMYCIN [Concomitant]
     Indication: ANTI-INFECTIVE THERAPY
     Route: 042
     Dates: start: 20010501, end: 20010501
  5. COLOMYCIN [Concomitant]
     Route: 042
     Dates: start: 20010601, end: 20010601
  6. CEFTAZIDIME [Concomitant]
     Indication: ANTI-INFECTIVE THERAPY
     Route: 042
     Dates: start: 20010601, end: 20010601

REACTIONS (2)
  - DRUG HYPERSENSITIVITY [None]
  - RENAL FAILURE ACUTE [None]
